FAERS Safety Report 25287778 (Version 2)
Quarter: 2025Q2

REPORT INFORMATION
  Report Type: Spontaneous
  Country: DE (occurrence: DE)
  Receive Date: 20250509
  Receipt Date: 20250514
  Transmission Date: 20250716
  Serious: Yes (Hospitalization)
  Sender: JOHNSON AND JOHNSON
  Company Number: DE-JNJFOC-20250508714

PATIENT
  Age: 58 Year
  Sex: Male

DRUGS (8)
  1. HALOPERIDOL DECANOATE [Suspect]
     Active Substance: HALOPERIDOL DECANOATE
     Indication: Schizophrenia
     Route: 030
  2. PIPAMPERONE [Suspect]
     Active Substance: PIPAMPERONE
     Indication: Schizophrenia
     Dosage: EVERY 1 DAY(S)
  3. LORAZEPAM [Suspect]
     Active Substance: LORAZEPAM
     Indication: Schizophrenia
     Dosage: EVERY 1 DAY(S)
  4. CLOZAPINE [Concomitant]
     Active Substance: CLOZAPINE
     Indication: Schizophrenia
     Route: 048
  5. CLOZAPINE [Concomitant]
     Active Substance: CLOZAPINE
     Indication: Schizophrenia
  6. ZUCLOPENTHIXOL [Concomitant]
     Active Substance: ZUCLOPENTHIXOL
     Indication: Schizophrenia
     Dosage: EVERY 1 DAY(S)
  7. MIRTAZAPINE [Concomitant]
     Active Substance: MIRTAZAPINE
     Indication: Schizophrenia
     Dosage: EVERY 1 DAY(S)
  8. LEVETIRACETAM [Concomitant]
     Active Substance: LEVETIRACETAM
     Indication: Schizophrenia
     Dosage: EVERY 1 DAY(S)

REACTIONS (3)
  - Sedation [Recovered/Resolved]
  - Cognitive disorder [Recovering/Resolving]
  - Bradyphrenia [Recovering/Resolving]
